FAERS Safety Report 20155235 (Version 1)
Quarter: 2021Q4

REPORT INFORMATION
  Report Type: Spontaneous
  Country: US (occurrence: US)
  Receive Date: 20211207
  Receipt Date: 20211207
  Transmission Date: 20220303
  Serious: Yes (Other)
  Sender: FDA-Public Use
  Company Number: US-BRISTOL-MYERS SQUIBB COMPANY-BMS-2021-131702

PATIENT
  Age: 66 Year
  Sex: Female

DRUGS (3)
  1. ORENCIA [Suspect]
     Active Substance: ABATACEPT
     Indication: Rheumatoid arthritis
     Dosage: 125 MILLIGRAM, QWK
     Route: 058
     Dates: start: 202111
  2. ESBRIET [Suspect]
     Active Substance: PIRFENIDONE
     Indication: Interstitial lung disease
     Dosage: 2 DOSAGE FORM, TID
     Route: 065
     Dates: start: 20211018
  3. ESBRIET [Suspect]
     Active Substance: PIRFENIDONE
     Dosage: 3 DOSAGE FORM, TID
     Route: 065

REACTIONS (3)
  - Interstitial lung disease [Unknown]
  - Gastric pH decreased [Unknown]
  - Fatigue [Unknown]
